FAERS Safety Report 7668767-7 (Version None)
Quarter: 2011Q3

REPORT INFORMATION
  Report Type: 
  Country: None (occurrence: None)
  Receive Date: 20110808
  Receipt Date: 20110729
  Transmission Date: 20111222
  Serious: Yes (Other)
  Sender: FDA-Public Use
  Company Number: DE-AMGEN-DEUSP2011038699

PATIENT
  Age: 81 Year
  Sex: Female
  Weight: 100 kg

DRUGS (1)
  1. PROLIA [Suspect]
     Indication: OSTEOPOROSIS
     Dosage: UNK UNK, ONE TIME DOSE
     Route: 058

REACTIONS (4)
  - IMPAIRED HEALING [None]
  - TOOTH LOSS [None]
  - LOOSE TOOTH [None]
  - TOOTH FRACTURE [None]
